FAERS Safety Report 7432669-1 (Version None)
Quarter: 2011Q2

REPORT INFORMATION
  Report Type: 
  Country: None (occurrence: None)
  Receive Date: 20110422
  Receipt Date: 20110412
  Transmission Date: 20111010
  Serious: Yes (Hospitalization)
  Sender: FDA-Public Use
  Company Number: NL-JNJFOC-20110202942

PATIENT
  Sex: Female
  Weight: 89 kg

DRUGS (7)
  1. ALLOPURINOL [Suspect]
     Indication: CROHN'S DISEASE
  2. AZATHIOPRINE [Suspect]
     Indication: CROHN'S DISEASE
  3. REMICADE [Suspect]
     Route: 042
  4. REMICADE [Suspect]
     Route: 042
  5. REMICADE [Suspect]
     Indication: CROHN'S DISEASE
     Route: 042
  6. ANDROCUR [Concomitant]
     Indication: HIDRADENITIS
  7. CALCICHEW [Concomitant]
     Indication: OSTEOPENIA

REACTIONS (1)
  - MENINGIOMA [None]
